FAERS Safety Report 18728271 (Version 1)
Quarter: 2021Q1

REPORT INFORMATION
  Report Type: Spontaneous
  Country: CA (occurrence: CA)
  Receive Date: 20210111
  Receipt Date: 20210111
  Transmission Date: 20210419
  Serious: Yes (Other)
  Sender: FDA-Public Use
  Company Number: CA-JNJFOC-20210112804

PATIENT
  Age: 72 Year
  Sex: Male
  Weight: 72 kg

DRUGS (1)
  1. REMICADE [Suspect]
     Active Substance: INFLIXIMAB
     Indication: CROHN^S DISEASE
     Route: 042

REACTIONS (6)
  - Inappropriate schedule of product administration [Unknown]
  - Intentional product use issue [Unknown]
  - Back injury [Unknown]
  - Off label use [Unknown]
  - Abdominal pain upper [Unknown]
  - Spinal disorder [Unknown]
